FAERS Safety Report 7175942-7 (Version None)
Quarter: 2010Q4

REPORT INFORMATION
  Report Type: 
  Country: None (occurrence: None)
  Receive Date: 20101220
  Receipt Date: 20101207
  Transmission Date: 20110411
  Serious: Yes (Other)
  Sender: FDA-Public Use
  Company Number: US-BIOGENIDEC-2010BI026744

PATIENT
  Age: 56 Year
  Sex: Female

DRUGS (2)
  1. AVONEX [Suspect]
     Indication: MULTIPLE SCLEROSIS
     Route: 030
     Dates: start: 20030701
  2. BLOOD PRESSURE PILLS (NOS) [Concomitant]
     Indication: BLOOD PRESSURE INCREASED

REACTIONS (2)
  - BLOOD PRESSURE INCREASED [None]
  - PAIN [None]
